FAERS Safety Report 13161017 (Version 1)
Quarter: 2017Q1

REPORT INFORMATION
  Report Type: Spontaneous
  Country: IN (occurrence: IN)
  Receive Date: 20170130
  Receipt Date: 20170130
  Transmission Date: 20170428
  Serious: Yes (Death, Other)
  Sender: FDA-Public Use
  Company Number: IN-SUN PHARMACEUTICAL INDUSTRIES LTD-2017R1-132429

PATIENT
  Age: 30 Year
  Sex: Male

DRUGS (11)
  1. OXYGEN. [Concomitant]
     Active Substance: OXYGEN
     Indication: PULMONARY VENO-OCCLUSIVE DISEASE
     Dosage: UNK
     Route: 065
  2. INFLUENZA VACCINE [Concomitant]
     Active Substance: INFLUENZA VIRUS VACCINE
     Indication: PRODUCT USED FOR UNKNOWN INDICATION
     Dosage: UNK
     Route: 065
  3. SILDENAFIL. [Suspect]
     Active Substance: SILDENAFIL
     Indication: PULMONARY CAPILLARY HAEMANGIOMATOSIS
  4. SPIRONOLACTONE. [Suspect]
     Active Substance: SPIRONOLACTONE
     Indication: PRODUCT USED FOR UNKNOWN INDICATION
     Dosage: UNK
     Route: 065
  5. DOXYCYCLINE. [Suspect]
     Active Substance: DOXYCYCLINE
     Indication: PULMONARY CAPILLARY HAEMANGIOMATOSIS
  6. OXYGEN. [Concomitant]
     Active Substance: OXYGEN
     Indication: PULMONARY CAPILLARY HAEMANGIOMATOSIS
  7. DOXYCYCLINE. [Suspect]
     Active Substance: DOXYCYCLINE
     Indication: PULMONARY VENO-OCCLUSIVE DISEASE
     Dosage: UNK
     Route: 065
  8. PNEUMOCOCCAL VACCINE POLYVALENT NOS [Concomitant]
     Active Substance: PNEUMOCOCCAL VACCINE POLYVALENT
     Indication: PRODUCT USED FOR UNKNOWN INDICATION
     Dosage: UNK
     Route: 065
  9. DIGOXIN. [Concomitant]
     Active Substance: DIGOXIN
     Indication: PULMONARY VENO-OCCLUSIVE DISEASE
     Dosage: UNK
     Route: 048
  10. SILDENAFIL. [Suspect]
     Active Substance: SILDENAFIL
     Indication: PULMONARY VENO-OCCLUSIVE DISEASE
     Dosage: UNK
     Route: 065
  11. DIGOXIN. [Concomitant]
     Active Substance: DIGOXIN
     Indication: PULMONARY CAPILLARY HAEMANGIOMATOSIS

REACTIONS (6)
  - Condition aggravated [Fatal]
  - Toxicity to various agents [Unknown]
  - Pulmonary capillary haemangiomatosis [Fatal]
  - Gynaecomastia [Unknown]
  - Pulmonary veno-occlusive disease [Fatal]
  - Hepatic enzyme increased [Unknown]
